FAERS Safety Report 4843549-X (Version None)
Quarter: 2005Q4

REPORT INFORMATION
  Report Type: 
  Country: None (occurrence: None)
  Receive Date: 20051129
  Receipt Date: 20051116
  Transmission Date: 20060501
  Serious: Yes (Hospitalization)
  Sender: FDA-Public Use
  Company Number: UY200511000473

PATIENT
  Age: 84 Year
  Sex: Female

DRUGS (4)
  1. FORTEO [Suspect]
     Indication: OSTEOPOROSIS
     Dosage: 1 U, DAILY, (1/D), INTRAMUSCULAR
     Route: 030
     Dates: start: 20051001
  2. FORTEO PEN ((250 MCG/ML) [Concomitant]
  3. CALCIUM GLUCONATE [Concomitant]
  4. ENALAPRIL [Concomitant]

REACTIONS (4)
  - BONE PAIN [None]
  - DEPRESSION [None]
  - HYPERCALCAEMIA [None]
  - PNEUMONIA [None]
